FAERS Safety Report 6587515-5 (Version None)
Quarter: 2010Q1

REPORT INFORMATION
  Report Type: 
  Country: None (occurrence: None)
  Receive Date: 20100204
  Receipt Date: 20100129
  Transmission Date: 20100710
  Serious: Yes (Other)
  Sender: FDA-Public Use
  Company Number: 2010000588

PATIENT
  Age: 74 Year
  Sex: Male

DRUGS (1)
  1. TREANDA [Suspect]
     Indication: CHRONIC LYMPHOCYTIC LEUKAEMIA
     Dosage: INTRAVENOUS
     Route: 042

REACTIONS (4)
  - BACTERIAL SEPSIS [None]
  - CYTOMEGALOVIRUS INFECTION [None]
  - GASTROENTERITIS [None]
  - PNEUMONIA [None]
